FAERS Safety Report 15453697 (Version 6)
Quarter: 2021Q2

REPORT INFORMATION
  Report Type: Spontaneous
  Country: US (occurrence: US)
  Receive Date: 20181001
  Receipt Date: 20210413
  Transmission Date: 20210716
  Serious: Yes (Other)
  Sender: FDA-Public Use
  Company Number: US-PFIZER INC-2018395559

PATIENT
  Age: 24 Year
  Sex: Male
  Weight: 76 kg

DRUGS (2)
  1. BENEFIX [Suspect]
     Active Substance: COAGULATION FACTOR IX RECOMBINANT HUMAN\ISOPROPYL ALCOHOL
     Dosage: 7300 IU, AS NEEDED [7300 UNITS (+/? 10%) = 100 UNITS/KG DAILY X 1 FOR BLEEDS ON DEMAND]
  2. BENEFIX [Suspect]
     Active Substance: COAGULATION FACTOR IX RECOMBINANT HUMAN\ISOPROPYL ALCOHOL
     Indication: HAEMORRHAGE
     Dosage: 7600 UNITS (+/?10%) = 100 UNITS/KG DAILY X 1 ON DEMAND

REACTIONS (2)
  - Haemorrhage [Unknown]
  - Mouth haemorrhage [Not Recovered/Not Resolved]
